FAERS Safety Report 16860705 (Version 1)
Quarter: 2019Q3

REPORT INFORMATION
  Report Type: Spontaneous
  Country: FR (occurrence: FR)
  Receive Date: 20190927
  Receipt Date: 20190927
  Transmission Date: 20191005
  Serious: Yes (Hospitalization, Other)
  Sender: FDA-Public Use
  Company Number: FR-BAYER-2019-173428

PATIENT
  Age: 51 Year
  Sex: Female

DRUGS (3)
  1. TARDYFERON [Concomitant]
     Active Substance: FERROUS SULFATE
     Indication: IRON DEFICIENCY ANAEMIA
     Dosage: 80 MG, QD
  2. PARIET [Concomitant]
     Active Substance: RABEPRAZOLE SODIUM
     Indication: GASTROINTESTINAL MALFORMATION
     Dosage: 20 MG, QD
  3. GADOVIST [Suspect]
     Active Substance: GADOBUTROL
     Indication: NUCLEAR MAGNETIC RESONANCE IMAGING
     Dosage: UNK, ONCE
     Dates: start: 20190912, end: 20190912

REACTIONS (19)
  - Musculoskeletal discomfort [None]
  - Abdominal discomfort [Recovered/Resolved]
  - Blood pressure abnormal [None]
  - Feeling cold [None]
  - Nausea [None]
  - Sensory loss [None]
  - Spinal pain [None]
  - Back pain [None]
  - Defaecation urgency [None]
  - Flatulence [None]
  - Diarrhoea [None]
  - Vision blurred [None]
  - Hyperhidrosis [Recovered/Resolved]
  - Paraplegia [None]
  - Gastric disorder [None]
  - Feeling hot [None]
  - Nausea [Recovered/Resolved]
  - Muscular weakness [None]
  - Eyelid oedema [Recovered/Resolved]

NARRATIVE: CASE EVENT DATE: 20190912
